FAERS Safety Report 12283803 (Version 1)
Quarter: 2016Q2

REPORT INFORMATION
  Report Type: Spontaneous
  Country: CA (occurrence: CA)
  Receive Date: 20160419
  Receipt Date: 20160419
  Transmission Date: 20160815
  Serious: No
  Sender: FDA-Public Use
  Company Number: CA-BANPHARM-20154513

PATIENT
  Age: 70 Year
  Sex: Male
  Weight: 79.38 kg

DRUGS (3)
  1. ALEVE [Suspect]
     Active Substance: NAPROXEN SODIUM
     Indication: BACK PAIN
     Route: 048
  2. DIOVAN [Concomitant]
     Active Substance: VALSARTAN
  3. CIALIS [Suspect]
     Active Substance: TADALAFIL

REACTIONS (1)
  - Haematospermia [Unknown]
